FAERS Safety Report 9436068 (Version 1)
Quarter: 2013Q3

REPORT INFORMATION
  Report Type: Spontaneous
  Country: ES (occurrence: ES)
  Receive Date: 20130801
  Receipt Date: 20130801
  Transmission Date: 20140515
  Serious: Yes (Other)
  Sender: FDA-Public Use
  Company Number: PHHY2013ES081790

PATIENT
  Age: 30 Year
  Sex: Male

DRUGS (9)
  1. CO-TRIMOXAZOLE [Suspect]
     Indication: INFECTION PROPHYLAXIS
  2. ACICLOVIR [Suspect]
     Indication: INFECTION PROPHYLAXIS
  3. QUINOLONES [Suspect]
     Indication: INFECTION PROPHYLAXIS
  4. CICLOSPORIN [Concomitant]
     Indication: PROPHYLAXIS AGAINST GRAFT VERSUS HOST DISEASE
  5. LAMIVUDINE [Concomitant]
     Indication: HIV INFECTION CDC CATEGORY C3
     Dosage: UNK
  6. CORTICOSTEROIDS [Concomitant]
     Indication: PROPHYLAXIS AGAINST GRAFT VERSUS HOST DISEASE
  7. RALTEGRAVIR [Concomitant]
     Indication: HIV INFECTION CDC CATEGORY C3
  8. ABACAVIR [Concomitant]
     Indication: HIV INFECTION CDC CATEGORY C3
  9. MICAFUNGIN [Concomitant]
     Indication: INFECTION PROPHYLAXIS

REACTIONS (3)
  - BK virus infection [Recovered/Resolved]
  - Escherichia bacteraemia [Recovered/Resolved]
  - Viral haemorrhagic cystitis [Recovered/Resolved]
